FAERS Safety Report 18734798 (Version 1)
Quarter: 2021Q1

REPORT INFORMATION
  Report Type: Spontaneous
  Country: IN (occurrence: AE)
  Receive Date: 20210113
  Receipt Date: 20210113
  Transmission Date: 20210419
  Serious: Yes (Life-Threatening, Hospitalization, Other)
  Sender: FDA-Public Use
  Company Number: AE-ELI_LILLY_AND_COMPANY-AE202101003850

PATIENT
  Age: 34 Year
  Sex: Female

DRUGS (1)
  1. GEMCITABINE HYDROCHLORIDE. [Suspect]
     Active Substance: GEMCITABINE HYDROCHLORIDE
     Indication: ADRENOCORTICAL CARCINOMA
     Dosage: UNK, CYCLICAL
     Route: 065
     Dates: start: 2016, end: 201812

REACTIONS (4)
  - Thrombocytopenia [Recovering/Resolving]
  - Thrombotic microangiopathy [Unknown]
  - Acute kidney injury [Unknown]
  - Microangiopathic haemolytic anaemia [Unknown]

NARRATIVE: CASE EVENT DATE: 201812
